FAERS Safety Report 14035639 (Version 1)
Quarter: 2017Q4

REPORT INFORMATION
  Report Type: Spontaneous
  Country: TW (occurrence: TW)
  Receive Date: 20171003
  Receipt Date: 20171003
  Transmission Date: 20180321
  Serious: Yes (Hospitalization)
  Sender: FDA-Public Use
  Company Number: TW-SA-2017SA175374

PATIENT
  Age: 52 Year
  Sex: Male

DRUGS (2)
  1. ISONIAZID. [Suspect]
     Active Substance: ISONIAZID
     Indication: LATENT TUBERCULOSIS
     Dosage: DOSE:300MG 3#
     Route: 048
     Dates: start: 20170830, end: 20170915
  2. PRIFTIN [Suspect]
     Active Substance: RIFAPENTINE
     Indication: LATENT TUBERCULOSIS
     Dosage: DOSE:150MG 6#
     Route: 048
     Dates: start: 20170830, end: 20170915

REACTIONS (8)
  - Diarrhoea [Unknown]
  - Icterus index increased [Unknown]
  - Shock [Unknown]
  - Dyspnoea [Unknown]
  - Myalgia [Unknown]
  - Pyrexia [Unknown]
  - Vomiting [Unknown]
  - Hypotension [Unknown]

NARRATIVE: CASE EVENT DATE: 20170830
